FAERS Safety Report 7345411-X (Version None)
Quarter: 2011Q1

REPORT INFORMATION
  Report Type: 
  Country: None (occurrence: None)
  Receive Date: 20110310
  Receipt Date: 20110301
  Transmission Date: 20110831
  Serious: Yes (Death, Hospitalization)
  Sender: FDA-Public Use
  Company Number: US-CELGENEUS-163-21880-11030283

PATIENT
  Sex: Female
  Weight: 62.652 kg

DRUGS (4)
  1. REVLIMID [Suspect]
     Dosage: 10 MILLIGRAM
     Route: 048
     Dates: start: 20100701, end: 20110228
  2. REVLIMID [Suspect]
     Indication: MULTIPLE MYELOMA
     Dosage: 5 MILLIGRAM
     Route: 048
     Dates: start: 20090701
  3. REVLIMID [Suspect]
     Dosage: 10-15 MG
     Route: 048
     Dates: start: 20100101, end: 20100601
  4. LASIX [Concomitant]
     Route: 065

REACTIONS (2)
  - MULTIPLE MYELOMA [None]
  - DEATH [None]
